FAERS Safety Report 7057656-7 (Version None)
Quarter: 2010Q4

REPORT INFORMATION
  Report Type: 
  Country: None (occurrence: None)
  Receive Date: 20101022
  Receipt Date: 20101013
  Transmission Date: 20110411
  Serious: Yes (Other)
  Sender: FDA-Public Use
  Company Number: JP-ROCHE-735152

PATIENT
  Sex: Female
  Weight: 71 kg

DRUGS (8)
  1. ACTEMRA [Suspect]
     Indication: RHEUMATOID ARTHRITIS
     Route: 042
     Dates: start: 20081211, end: 20081211
  2. ACTEMRA [Suspect]
     Route: 042
     Dates: start: 20090108, end: 20090108
  3. ACTEMRA [Suspect]
     Route: 042
     Dates: start: 20090205, end: 20090205
  4. RHEUMATREX [Concomitant]
     Route: 048
  5. MEDROL [Concomitant]
     Route: 048
  6. SALAGEN [Concomitant]
     Route: 048
  7. LORCAM [Concomitant]
     Route: 048
  8. SELBEX [Concomitant]
     Route: 048

REACTIONS (1)
  - SKIN CANCER [None]
